FAERS Safety Report 21614676 (Version 19)
Quarter: 2024Q2

REPORT INFORMATION
  Report Type: Report from Study
  Country: DE (occurrence: DE)
  Receive Date: 20221118
  Receipt Date: 20240412
  Transmission Date: 20240715
  Serious: Yes (Hospitalization, Other)
  Sender: FDA-Public Use
  Company Number: DE-TAKEDA-2021TUS005562

PATIENT
  Age: 60 Year
  Sex: Male

DRUGS (17)
  1. HUMAN IMMUNOGLOBULIN G\HYALURONIDASE RECOMBINANT HUMAN [Suspect]
     Active Substance: HUMAN IMMUNOGLOBULIN G\HYALURONIDASE (HUMAN RECOMBINANT)
     Indication: Immunodeficiency
     Dosage: 10 GRAM, 1/WEEK
     Route: 058
     Dates: start: 20210121
  2. HUMAN IMMUNOGLOBULIN G\HYALURONIDASE RECOMBINANT HUMAN [Suspect]
     Active Substance: HUMAN IMMUNOGLOBULIN G\HYALURONIDASE (HUMAN RECOMBINANT)
     Indication: Secondary immunodeficiency
     Dosage: 10 GRAM, 1/WEEK
     Route: 058
  3. HUMAN IMMUNOGLOBULIN G\HYALURONIDASE RECOMBINANT HUMAN [Suspect]
     Active Substance: HUMAN IMMUNOGLOBULIN G\HYALURONIDASE (HUMAN RECOMBINANT)
     Dosage: 20 GRAM, Q2WEEKS
     Route: 058
  4. HUMAN IMMUNOGLOBULIN G\HYALURONIDASE RECOMBINANT HUMAN [Suspect]
     Active Substance: HUMAN IMMUNOGLOBULIN G\HYALURONIDASE (HUMAN RECOMBINANT)
     Dosage: 10 GRAM, 1/WEEK
     Route: 058
  5. HUMAN IMMUNOGLOBULIN G\HYALURONIDASE RECOMBINANT HUMAN [Suspect]
     Active Substance: HUMAN IMMUNOGLOBULIN G\HYALURONIDASE (HUMAN RECOMBINANT)
     Dosage: 10 GRAM, 1/WEEK
     Route: 058
  6. HUMAN IMMUNOGLOBULIN G\HYALURONIDASE RECOMBINANT HUMAN [Suspect]
     Active Substance: HUMAN IMMUNOGLOBULIN G\HYALURONIDASE (HUMAN RECOMBINANT)
     Dosage: 10 GRAM, 1/WEEK
     Route: 058
     Dates: start: 20210125
  7. HUMAN IMMUNOGLOBULIN G\HYALURONIDASE RECOMBINANT HUMAN [Suspect]
     Active Substance: HUMAN IMMUNOGLOBULIN G\HYALURONIDASE (HUMAN RECOMBINANT)
     Dosage: 10 GRAM, 1/WEEK
     Route: 058
     Dates: start: 20210209
  8. HUMAN IMMUNOGLOBULIN G\HYALURONIDASE RECOMBINANT HUMAN [Suspect]
     Active Substance: HUMAN IMMUNOGLOBULIN G\HYALURONIDASE (HUMAN RECOMBINANT)
     Dosage: 10 GRAM, 1/WEEK
     Route: 058
  9. HUMAN IMMUNOGLOBULIN G\HYALURONIDASE RECOMBINANT HUMAN [Suspect]
     Active Substance: HUMAN IMMUNOGLOBULIN G\HYALURONIDASE (HUMAN RECOMBINANT)
     Dosage: 10 GRAM, Q2WEEKS
     Route: 058
  10. HUMAN IMMUNOGLOBULIN G\HYALURONIDASE RECOMBINANT HUMAN [Suspect]
     Active Substance: HUMAN IMMUNOGLOBULIN G\HYALURONIDASE (HUMAN RECOMBINANT)
     Dosage: 10 GRAM, 1/WEEK
     Route: 058
  11. HUMAN IMMUNOGLOBULIN G\HYALURONIDASE RECOMBINANT HUMAN [Suspect]
     Active Substance: HUMAN IMMUNOGLOBULIN G\HYALURONIDASE (HUMAN RECOMBINANT)
     Dosage: 10 GRAM, 1/WEEK
     Route: 058
  12. KIOVIG [Suspect]
     Active Substance: HUMAN IMMUNOGLOBULIN G
     Indication: Product used for unknown indication
     Dosage: 10 GRAM
     Route: 042
  13. INFLUENZA VIRUS VACCINE [Suspect]
     Active Substance: INFLUENZA VIRUS VACCINE
     Indication: Product used for unknown indication
     Dosage: UNK
     Route: 065
  14. Novamin [Concomitant]
     Indication: Headache
     Dosage: 500 MILLIGRAM
     Route: 048
     Dates: start: 20210122
  15. NALOXONE HYDROCHLORIDE\TILIDINE HYDROCHLORIDE [Concomitant]
     Active Substance: NALOXONE HYDROCHLORIDE\TILIDINE HYDROCHLORIDE
     Indication: Headache
     Dosage: UNK
     Route: 048
     Dates: start: 20210122
  16. CICLOPIROX [Concomitant]
     Active Substance: CICLOPIROX\TOCOPHEROL
     Dosage: UNK, BID
     Route: 065
  17. LOTRIMIN AF ANTIFUNGAL [Concomitant]
     Active Substance: MICONAZOLE NITRATE
     Dosage: UNK, QD
     Route: 065

REACTIONS (23)
  - Headache [Recovered/Resolved]
  - Pneumonia [Recovered/Resolved]
  - Medical device site necrosis [Recovered/Resolved]
  - Medical device site haemorrhage [Recovered/Resolved]
  - Influenza [Recovered/Resolved]
  - COVID-19 [Recovered/Resolved]
  - Respiratory syncytial virus infection [Recovered/Resolved]
  - Pleural effusion [Recovered/Resolved]
  - Aspiration pleural cavity [Recovered/Resolved]
  - Wound infection [Recovered/Resolved]
  - Hypersensitivity [Unknown]
  - Dyspnoea [Recovered/Resolved]
  - Pyrexia [Unknown]
  - Medical device site eczema [Unknown]
  - Medical device site rash [Unknown]
  - Eczema [Unknown]
  - Infection [Unknown]
  - Rash [Unknown]
  - Respiratory tract infection [Unknown]
  - Device infusion issue [Unknown]
  - Device issue [Unknown]
  - Device difficult to use [Unknown]
  - Incorrect dose administered [Unknown]

NARRATIVE: CASE EVENT DATE: 20210123
